FAERS Safety Report 7554178-1 (Version None)
Quarter: 2011Q2

REPORT INFORMATION
  Report Type: 
  Country: None (occurrence: None)
  Receive Date: 20110617
  Receipt Date: 20110607
  Transmission Date: 20111010
  Serious: Yes (Other)
  Sender: FDA-Public Use
  Company Number: PHHY2011GB49391

PATIENT
  Age: 43 Year
  Sex: Male

DRUGS (14)
  1. MARAVIROC [Suspect]
     Dosage: 150 MG, BID
  2. TENOFOVIR DISOPROXIL FUMARATE [Suspect]
     Dosage: 245 MG, QD
  3. PERINDOPRIL ERBUMINE [Interacting]
     Indication: BLOOD PRESSURE INCREASED
  4. PROPRANOLOL [Suspect]
     Indication: BLOOD PRESSURE INCREASED
     Dosage: 10 MG, QD
  5. SUMATRIPTAN SUCCINATE [Suspect]
  6. RAMIPRIL [Suspect]
     Indication: BLOOD PRESSURE INCREASED
  7. TENOFOVIR DISOPROXIL FUMARATE [Suspect]
     Dosage: 245 MG, ON ALTERNATE DAYS
  8. BENDROFLUMETHIAZIDE [Suspect]
     Indication: BLOOD PRESSURE INCREASED
  9. PROPRANOLOL [Suspect]
     Dosage: 40 MG, UNK
  10. DARUNAVIR ETHANOLATE [Interacting]
     Dosage: 800 MG, QD
  11. RITONAVIR [Interacting]
     Dosage: 100 MG, QD
  12. ATORVASTATIN [Suspect]
     Indication: LIPIDS INCREASED
  13. EMTRICITABINE [Suspect]
     Dosage: 200 MG, QD
  14. RALTEGRAVIR [Suspect]
     Dosage: 400 MG, BID

REACTIONS (8)
  - BLOOD PRESSURE INCREASED [None]
  - BLOOD UREA INCREASED [None]
  - DRUG INTERACTION [None]
  - LIPIDS INCREASED [None]
  - DRUG INEFFECTIVE [None]
  - BLOOD CREATININE INCREASED [None]
  - MIGRAINE [None]
  - RENAL IMPAIRMENT [None]
